FAERS Safety Report 9099512 (Version 1)
Quarter: 2013Q1

REPORT INFORMATION
  Report Type: Spontaneous
  Country: GB (occurrence: GB)
  Receive Date: 20130214
  Receipt Date: 20130214
  Transmission Date: 20140127
  Serious: Yes (Hospitalization, Other)
  Sender: FDA-Public Use
  Company Number: GB-TEVA-384351ISR

PATIENT
  Age: 82 Year
  Sex: Female

DRUGS (2)
  1. NITROFURANTOIN [Suspect]
     Indication: URINARY TRACT INFECTION
     Route: 048
     Dates: start: 20120830, end: 20120907
  2. TRIMETHOPRIM [Concomitant]
     Dosage: COURSE
     Dates: start: 20120824, end: 20120830

REACTIONS (5)
  - Treatment failure [Unknown]
  - Medication error [Unknown]
  - Vomiting [Unknown]
  - Malaise [Unknown]
  - Nausea [Unknown]
